FAERS Safety Report 13757681 (Version 1)
Quarter: 2017Q3

REPORT INFORMATION
  Report Type: Spontaneous
  Country: US (occurrence: US)
  Receive Date: 20170717
  Receipt Date: 20170717
  Transmission Date: 20171127
  Serious: No
  Sender: FDA-Public Use
  Company Number: US-AUROBINDO-AUR-APL-2016-07492

PATIENT
  Sex: Female

DRUGS (1)
  1. VALACICLOVIR [Suspect]
     Active Substance: VALACYCLOVIR HYDROCHLORIDE
     Indication: GENITAL HERPES
     Route: 065

REACTIONS (6)
  - Genital pain [Unknown]
  - Drug ineffective [Unknown]
  - Oral pain [Unknown]
  - Headache [Unknown]
  - Oral mucosal blistering [Unknown]
  - Product substitution issue [Unknown]
